FAERS Safety Report 8152145-0 (Version None)
Quarter: 2012Q1

REPORT INFORMATION
  Report Type: 
  Country: None (occurrence: None)
  Receive Date: 20120215
  Receipt Date: 20120215
  Transmission Date: 20120608
  Serious: No
  Sender: FDA-Public Use
  Company Number: None

PATIENT
  Sex: Male
  Weight: 83.5 kg

DRUGS (2)
  1. GEMCITABINE HYDROCHLORIDE [Suspect]
     Dosage: 5760 MG
  2. TARCEVA [Suspect]
     Dosage: 2300 MG

REACTIONS (3)
  - HYPOPHOSPHATAEMIA [None]
  - HYPOKALAEMIA [None]
  - BLOOD PRESSURE DECREASED [None]
